FAERS Safety Report 10385100 (Version 4)
Quarter: 2016Q4

REPORT INFORMATION
  Report Type: Report from Study
  Country: US (occurrence: US)
  Receive Date: 20140814
  Receipt Date: 20161103
  Transmission Date: 20170206
  Serious: Yes (Hospitalization)
  Sender: FDA-Public Use
  Company Number: US-SA-2014SA080548

PATIENT
  Age: 67 Year
  Sex: Female

DRUGS (5)
  1. VITAMIN B12 [Concomitant]
     Active Substance: CYANOCOBALAMIN
  2. AUBAGIO [Suspect]
     Active Substance: TERIFLUNOMIDE
     Indication: MULTIPLE SCLEROSIS
     Route: 048
     Dates: start: 20140404
  3. AUBAGIO [Suspect]
     Active Substance: TERIFLUNOMIDE
     Indication: MULTIPLE SCLEROSIS
     Route: 048
     Dates: start: 201407, end: 20140718
  4. MAXALT [Concomitant]
     Active Substance: RIZATRIPTAN BENZOATE
  5. AUBAGIO [Suspect]
     Active Substance: TERIFLUNOMIDE
     Indication: MULTIPLE SCLEROSIS
     Route: 048
     Dates: start: 20140409, end: 20140701

REACTIONS (16)
  - Hypotension [Not Recovered/Not Resolved]
  - Discomfort [Unknown]
  - Peripheral artery bypass [Unknown]
  - Cerebral haemorrhage [Unknown]
  - Coronary artery bypass [Unknown]
  - Muscle fatigue [Unknown]
  - Mouth injury [Unknown]
  - Blood disorder [Not Recovered/Not Resolved]
  - Fall [Unknown]
  - Tremor [Unknown]
  - Sleep disorder [Not Recovered/Not Resolved]
  - Alopecia [Not Recovered/Not Resolved]
  - Insomnia [Not Recovered/Not Resolved]
  - Tooth loss [Unknown]
  - Gait disturbance [Unknown]
  - Asthenia [Not Recovered/Not Resolved]

NARRATIVE: CASE EVENT DATE: 201407
